FAERS Safety Report 17314309 (Version 1)
Quarter: 2020Q1

REPORT INFORMATION
  Report Type: Spontaneous
  Country: US (occurrence: US)
  Receive Date: 20200107
  Receipt Date: 20200107
  Transmission Date: 20200409
  Serious: No
  Sender: FDA-Public Use
  Company Number: None

PATIENT
  Age: 64 Year
  Sex: Male

DRUGS (1)
  1. ERLEADA [Suspect]
     Active Substance: APALUTAMIDE
     Dosage: ?          OTHER FREQUENCY:OTHER;?
     Route: 048
     Dates: start: 201910

REACTIONS (2)
  - Micturition urgency [None]
  - Hot flush [None]

NARRATIVE: CASE EVENT DATE: 20200107
